FAERS Safety Report 5961128-8 (Version None)
Quarter: 2008Q4

REPORT INFORMATION
  Report Type: 
  Country: None (occurrence: None)
  Receive Date: 20081119
  Receipt Date: 20081107
  Transmission Date: 20090506
  Serious: Yes (Death, Other)
  Sender: FDA-Public Use
  Company Number: GXKR2008IT10674

PATIENT
  Age: 31 Year
  Sex: Male

DRUGS (11)
  1. DOXORUBICIN HCL [Suspect]
     Indication: DIFFUSE LARGE B-CELL LYMPHOMA
     Dosage: 50 MG/M2, WEEKS 1,3,5,7,9,11,
  2. ETOPOSIDE [Suspect]
     Indication: DIFFUSE LARGE B-CELL LYMPHOMA
     Dosage: SEE IMAGE
  3. ETOPOSIDE [Suspect]
     Indication: DIFFUSE LARGE B-CELL LYMPHOMA
     Dosage: 100 MG/M2, DAY 2 AND 3, WEEKS 3, 7, 11, ORAL
     Route: 048
  4. VINCRISTINE [Suspect]
     Indication: DIFFUSE LARGE B-CELL LYMPHOMA
     Dosage: 1.4 MG/M2, WEEKS, 2, 4, 6, 8, 10, 12
  5. BLEOMYCIN SULFATE [Suspect]
     Indication: DIFFUSE LARGE B-CELL LYMPHOMA
     Dosage: 10 IU/M2, WEEKS 2, 4, 6, 8, 10, 12
  6. PREDNISONE [Suspect]
     Indication: DIFFUSE LARGE B-CELL LYMPHOMA
     Dosage: 40 MG/M2, EVERY OTHER DAY, WEEKS 1-10, TAPERED DURING WEEKS 11 AND 12, ORAL
     Route: 048
  7. CYCLOPHOSPHAMIDE [Suspect]
     Indication: DIFFUSE LARGE B-CELL LYMPHOMA
     Dosage: 350 MG/M2, WEEKS 1, 5, 9
  8. CO-TRIMOXAZOLE (CO-TRIMOXAZOLE) [Concomitant]
  9. FLUCONAZOLE [Concomitant]
  10. RANITIDINE [Concomitant]
  11. ACYCLOVIR [Concomitant]

REACTIONS (2)
  - INTERSTITIAL LUNG DISEASE [None]
  - NEUTROPENIA [None]
